FAERS Safety Report 8805345 (Version 2)
Quarter: 2012Q4

REPORT INFORMATION
  Report Type: 
  Country: DE (occurrence: DE)
  Receive Date: 20120924
  Receipt Date: 20121006
  Transmission Date: 20130627
  Serious: Yes (Other)
  Sender: FDA-Public Use
  Company Number: DE-UCBSA-066339

PATIENT
  Age: 53 Year
  Sex: Female
  Weight: 65 kg

DRUGS (3)
  1. KEPPRA [Suspect]
     Dosage: TOTAL AMOUNT:17000 MG, 17 TABLETS
     Route: 048
     Dates: start: 20120916
  2. SEROQUEL [Suspect]
     Dosage: TOTAL AMOUNT:2000 MG,20 TABLETS
     Route: 048
     Dates: start: 20120916
  3. LAMOTRIGINE [Suspect]
     Dosage: TOTAL AMOUNT: 1000 MG,10 TABLETS
     Route: 048
     Dates: start: 20120916

REACTIONS (5)
  - Suicide attempt [Recovered/Resolved]
  - Miosis [Recovered/Resolved]
  - Somnolence [Recovered/Resolved]
  - Tachycardia [Recovered/Resolved]
  - Sopor [Recovered/Resolved]
